FAERS Safety Report 7537079-4 (Version None)
Quarter: 2011Q2

REPORT INFORMATION
  Report Type: 
  Country: None (occurrence: None)
  Receive Date: 20110609
  Receipt Date: 20110527
  Transmission Date: 20111010
  Serious: Yes (Hospitalization, Other)
  Sender: FDA-Public Use
  Company Number: PHHY2010JP78872

PATIENT
  Sex: Male

DRUGS (10)
  1. AFINITOR [Suspect]
     Dosage: 10 MG, DAILY
     Route: 048
     Dates: start: 20110309, end: 20110331
  2. CELTECT [Concomitant]
     Dosage: 60 MG, UNK
     Route: 048
     Dates: start: 20100914, end: 20101011
  3. SUTENT [Concomitant]
     Indication: METASTATIC RENAL CELL CARCINOMA
     Dosage: 37.5 MG, UNK
     Route: 048
     Dates: start: 20110401
  4. LASIX [Concomitant]
     Dosage: 20 MG, UNK
     Route: 048
     Dates: start: 20100831, end: 20100913
  5. AFINITOR [Suspect]
     Dosage: 10 MG, DAILY
     Route: 048
     Dates: start: 20101119, end: 20110111
  6. AFINITOR [Suspect]
     Dosage: 10 MG, DAILY
     Route: 048
     Dates: start: 20100809, end: 20101112
  7. AFINITOR [Suspect]
     Dosage: 10 MG, DAILY
     Route: 048
     Dates: start: 20110125, end: 20110306
  8. AFINITOR [Suspect]
     Dosage: 10 MG, DAILY
     Route: 048
     Dates: start: 20100719, end: 20100802
  9. TALION [Concomitant]
     Dosage: 20 MG, UNK
     Route: 048
     Dates: start: 20100831, end: 20100913
  10. AFINITOR [Suspect]
     Indication: METASTATIC RENAL CELL CARCINOMA
     Dosage: 10 MG, DAILY
     Route: 048
     Dates: start: 20100627, end: 20100712

REACTIONS (4)
  - CHEST X-RAY ABNORMAL [None]
  - ILEUS [None]
  - PNEUMONIA BACTERIAL [None]
  - NEOPLASM MALIGNANT [None]
